FAERS Safety Report 6522832-6 (Version None)
Quarter: 2009Q4

REPORT INFORMATION
  Report Type: 
  Country: None (occurrence: None)
  Receive Date: 20091230
  Receipt Date: 20091119
  Transmission Date: 20100525
  Serious: No
  Sender: FDA-Public Use
  Company Number: US-BAYER-200942034NA

PATIENT
  Age: 74 Year
  Sex: Male
  Weight: 93 kg

DRUGS (3)
  1. ULTRAVIST 300 [Suspect]
     Indication: COMPUTERISED TOMOGRAM THORAX
     Dosage: TOTAL DAILY DOSE: 138 ML  UNIT DOSE: 200 ML
     Route: 042
     Dates: start: 20091119, end: 20091119
  2. DOXYCYLINE [Concomitant]
     Dates: start: 20091119, end: 20091119
  3. BARIUM [Concomitant]
     Indication: COMPUTERISED TOMOGRAM ABDOMEN
     Route: 048
     Dates: start: 20091119, end: 20091119

REACTIONS (2)
  - NAUSEA [None]
  - VOMITING [None]
